FAERS Safety Report 6862203-6 (Version None)
Quarter: 2010Q3

REPORT INFORMATION
  Report Type: 
  Country: None (occurrence: None)
  Receive Date: 20100719
  Receipt Date: 20100712
  Transmission Date: 20110219
  Serious: Yes (Life-Threatening, Other)
  Sender: FDA-Public Use
  Company Number: 1000013962

PATIENT
  Age: 38 Year
  Sex: Female

DRUGS (1)
  1. SAVELLA [Suspect]
     Dosage: 12.5 MG (12.5 MG,1 IN 1 D), ORAL
     Route: 048

REACTIONS (1)
  - MYOCARDIAL INFARCTION [None]
